FAERS Safety Report 8564620-5 (Version None)
Quarter: 2012Q3

REPORT INFORMATION
  Report Type: 
  Country: None (occurrence: None)
  Receive Date: 20120803
  Receipt Date: 20110218
  Transmission Date: 20120928
  Serious: Yes (Hospitalization)
  Sender: FDA-Public Use
  Company Number: FR-009507513-2009SP000009

PATIENT

DRUGS (15)
  1. PLACEBO [Suspect]
     Dosage: 600 MG, BID
     Route: 048
     Dates: start: 20080301, end: 20081219
  2. BLINDED PRE TRIAL THERAPY [Suspect]
     Dosage: 600 MG, BID
     Route: 048
     Dates: start: 20080301, end: 20081219
  3. RIBAVIRIN [Suspect]
     Dosage: 600 MG, BID
     Route: 048
     Dates: start: 20080301, end: 20081219
  4. VIRAFERONPEG [Suspect]
     Indication: HEPATITIS C
     Dosage: 45 ?G, QW
     Route: 058
     Dates: start: 20080301
  5. PEGINTERFERON ALFA-2B [Suspect]
     Dosage: 600 MG, BID
     Route: 048
     Dates: start: 20080301, end: 20081219
  6. PLACEBO [Suspect]
     Indication: HEPATITIS C
     Dosage: 600 MG, BID
     Route: 048
     Dates: start: 20080301, end: 20081219
  7. PEGINTERFERON ALFA-2B [Suspect]
     Indication: HEPATITIS C
     Dosage: 600 MG, BID
     Route: 048
     Dates: start: 20080301, end: 20081219
  8. BLINDED POST TRIAL THERAPY [Suspect]
     Dosage: 600 MG, BID
     Route: 048
     Dates: start: 20080301, end: 20081219
  9. BLINDED PRE TRIAL THERAPY [Suspect]
     Indication: HEPATITIS C
     Dosage: 600 MG, BID
     Route: 048
     Dates: start: 20080301, end: 20081219
  10. BLINDED POST TRIAL THERAPY [Suspect]
     Indication: HEPATITIS C
     Dosage: 600 MG, BID
     Route: 048
     Dates: start: 20080301, end: 20081219
  11. PERINDOPRIL ERBUMINE [Concomitant]
     Indication: HYPERTENSION
     Dosage: 6 MG, QD
     Dates: start: 20081224
  12. BLINDED POST TRIAL THERAPY [Suspect]
     Dosage: 600 MG, BID
     Route: 048
     Dates: start: 20080301, end: 20081219
  13. BLINDED PRE TRIAL THERAPY [Suspect]
     Dosage: 600 MG, BID
     Route: 048
     Dates: start: 20080301, end: 20081219
  14. METFORMIN HYDROCHLORIDE [Concomitant]
     Indication: TYPE 2 DIABETES MELLITUS
     Dosage: INITIATED PRIOR STUDY
  15. RIBAVIRIN [Suspect]
     Indication: HEPATITIS C
     Dosage: 600 MG, BID
     Route: 048
     Dates: start: 20080301, end: 20081219

REACTIONS (1)
  - ANAEMIA [None]
